FAERS Safety Report 4394789-8 (Version None)
Quarter: 2004Q3

REPORT INFORMATION
  Report Type: 
  Country: None (occurrence: None)
  Receive Date: 20040707
  Receipt Date: 20040622
  Transmission Date: 20050211
  Serious: Yes (Hospitalization)
  Sender: FDA-Public Use
  Company Number: MK200406-0205-1

PATIENT
  Age: 71 Year
  Sex: Male

DRUGS (7)
  1. TOFRANIL TAB [Suspect]
  2. AMANTADINE HCL [Suspect]
  3. DIGOXIN [Concomitant]
  4. FRANDOL [Concomitant]
  5. LASIX [Concomitant]
  6. SODIUM CHLORIDE INJ [Concomitant]
  7. WARFARIN SODIUM [Concomitant]

REACTIONS (1)
  - INFECTION [None]
